FAERS Safety Report 5011065-0 (Version None)
Quarter: 2006Q2

REPORT INFORMATION
  Report Type: 
  Country: None (occurrence: None)
  Receive Date: 20060523
  Receipt Date: 20060510
  Transmission Date: 20061013
  Serious: Yes (Death)
  Sender: FDA-Public Use
  Company Number: 224936

PATIENT
  Age: 51 Year
  Sex: Male

DRUGS (1)
  1. RITUXAN [Suspect]
     Indication: IDIOPATHIC THROMBOCYTOPENIC PURPURA
     Dates: start: 20060224, end: 20060224

REACTIONS (1)
  - DEATH [None]
